FAERS Safety Report 5326375-7 (Version None)
Quarter: 2007Q2

REPORT INFORMATION
  Report Type: 
  Country: None (occurrence: None)
  Receive Date: 20070516
  Receipt Date: 20070514
  Transmission Date: 20071010
  Serious: Yes (Life-Threatening)
  Sender: FDA-Public Use
  Company Number: B0470819A

PATIENT
  Age: 64 Year
  Sex: Female

DRUGS (3)
  1. CLAMOXYL [Suspect]
     Dosage: 2G TWICE PER DAY
     Route: 048
     Dates: start: 20050315, end: 20050315
  2. DOLIPRANE [Concomitant]
     Dosage: 500MG SIX TIMES PER DAY
     Route: 048
     Dates: start: 20050315, end: 20050315
  3. BISEPTINE [Concomitant]
     Route: 061
     Dates: start: 20050315, end: 20050315

REACTIONS (5)
  - ANGIOEDEMA [None]
  - DYSPHAGIA [None]
  - FACE OEDEMA [None]
  - PRURITUS [None]
  - URTICARIA [None]
